FAERS Safety Report 8175573-6 (Version None)
Quarter: 2012Q1

REPORT INFORMATION
  Report Type: 
  Country: None (occurrence: None)
  Receive Date: 20120301
  Receipt Date: 20120221
  Transmission Date: 20120608
  Serious: Yes (Hospitalization, Other)
  Sender: FDA-Public Use
  Company Number: US-BIOGENIDEC-2011BI038776

PATIENT
  Age: 52 Year
  Sex: Female

DRUGS (3)
  1. TYSABRI [Suspect]
     Indication: MULTIPLE SCLEROSIS
     Route: 042
     Dates: start: 20070823, end: 20110722
  2. TYSABRI [Suspect]
     Route: 042
  3. TYSABRI [Suspect]
     Route: 042
     Dates: start: 20111201

REACTIONS (6)
  - HEPATIC CIRRHOSIS [None]
  - PSORIASIS [None]
  - URINARY TRACT INFECTION [None]
  - MULTIPLE SCLEROSIS RELAPSE [None]
  - FALL [None]
  - MOBILITY DECREASED [None]
